FAERS Safety Report 7865672-8 (Version None)
Quarter: 2011Q4

REPORT INFORMATION
  Report Type: 
  Country: None (occurrence: None)
  Receive Date: 20111028
  Receipt Date: 20110204
  Transmission Date: 20120403
  Serious: No
  Sender: FDA-Public Use
  Company Number: US-GLAXOSMITHKLINE-A0911969A

PATIENT
  Age: 76 Year
  Sex: Female

DRUGS (4)
  1. ADVAIR DISKUS 100/50 [Suspect]
     Indication: BRONCHITIS CHRONIC
     Dosage: 1PUFF TWICE PER DAY
     Route: 055
     Dates: start: 20060201
  2. COZAAR [Concomitant]
  3. CIPROFLOXACIN [Concomitant]
  4. CHLOROTHIAZIDE [Concomitant]

REACTIONS (1)
  - WEIGHT INCREASED [None]
